FAERS Safety Report 9133307 (Version 3)
Quarter: 2013Q4

REPORT INFORMATION
  Report Type: Spontaneous
  Country: US (occurrence: US)
  Receive Date: 20130301
  Receipt Date: 20131025
  Transmission Date: 20140711
  Serious: Yes (Hospitalization)
  Sender: FDA-Public Use
  Company Number: US-ASTRAZENECA-2013SE12017

PATIENT
  Age: 33 Year
  Sex: Female

DRUGS (3)
  1. ZOMIG ZMT [Suspect]
     Indication: MIGRAINE
     Dosage: 1 AT ONSET OF HEADACHE, MAY TAKE 1 TWO TIMES A DAY AS REQUIRED
     Route: 048
     Dates: start: 2007
  2. ZOMIG ZMT [Suspect]
     Indication: MIGRAINE
     Route: 048
     Dates: start: 201301
  3. LUPRON [Concomitant]
     Dosage: UNKNOWN DOSE EVERY THREE MONTHS
     Dates: start: 20120629

REACTIONS (5)
  - Exposure during pregnancy [Recovered/Resolved]
  - Abortion spontaneous [Unknown]
  - Uterine leiomyoma [Unknown]
  - Endometriosis [Unknown]
  - Drug effect incomplete [Unknown]
